FAERS Safety Report 17399399 (Version 1)
Quarter: 2020Q1

REPORT INFORMATION
  Report Type: Spontaneous
  Country: US (occurrence: US)
  Receive Date: 20200211
  Receipt Date: 20200211
  Transmission Date: 20200409
  Serious: Yes (Hospitalization)
  Sender: FDA-Public Use
  Company Number: US-JNJFOC-20200150689

PATIENT
  Age: 15 Year
  Sex: Male

DRUGS (1)
  1. TYLENOL EXTRA STRENGTH [Suspect]
     Active Substance: ACETAMINOPHEN
     Indication: PRODUCT USED FOR UNKNOWN INDICATION
     Dosage: 30-45 TABS, ONCE
     Route: 048
     Dates: start: 20200129, end: 20200129

REACTIONS (6)
  - Suspected suicide [Unknown]
  - Intentional overdose [Unknown]
  - Transaminases increased [Unknown]
  - Blood glucose increased [Unknown]
  - Blood chloride abnormal [Unknown]
  - Vomiting [Unknown]

NARRATIVE: CASE EVENT DATE: 202001
